FAERS Safety Report 8293377-0 (Version None)
Quarter: 2012Q2

REPORT INFORMATION
  Report Type: 
  Country: None (occurrence: None)
  Receive Date: 20120417
  Receipt Date: 20110906
  Transmission Date: 20120825
  Serious: No
  Sender: FDA-Public Use
  Company Number: US-ASTRAZENECA-2011SE18641

PATIENT
  Age: 73 Year
  Sex: Female

DRUGS (2)
  1. NEXIUM [Suspect]
     Route: 048
  2. NEXIUM [Suspect]
     Route: 048

REACTIONS (8)
  - POSTURE ABNORMAL [None]
  - MUSCULOSKELETAL DISCOMFORT [None]
  - ARTHRITIS [None]
  - OSTEOARTHRITIS [None]
  - HYPOKINESIA [None]
  - ARTHRALGIA [None]
  - PAIN [None]
  - DYSPEPSIA [None]
